FAERS Safety Report 10047937 (Version 1)
Quarter: 2014Q1

REPORT INFORMATION
  Report Type: Spontaneous
  Country: US (occurrence: None)
  Receive Date: 20140306
  Receipt Date: 20140306
  Transmission Date: 20141002
  Serious: Yes (Hospitalization)
  Sender: FDA-Public Use
  Company Number: 163-21880-1310457

PATIENT
  Age: 87 Year
  Sex: Male

DRUGS (1)
  1. REVLIMID [Suspect]
     Indication: MANTLE CELL LYMPHOMA
     Dosage: TEMPORARILY INTERRUPTED
     Route: 048
     Dates: start: 201308

REACTIONS (5)
  - Hypersensitivity [None]
  - Rash [None]
  - Pain [None]
  - Full blood count decreased [None]
  - Mantle cell lymphoma [None]
